FAERS Safety Report 6220341-5 (Version None)
Quarter: 2009Q2

REPORT INFORMATION
  Report Type: 
  Country: None (occurrence: None)
  Receive Date: 20090610
  Receipt Date: 20090528
  Transmission Date: 20091009
  Serious: Yes (Other)
  Sender: FDA-Public Use
  Company Number: RO-PFIZER INC-2009220315

PATIENT
  Age: 37 Year

DRUGS (1)
  1. SORTIS [Suspect]
     Indication: DYSLIPIDAEMIA
     Dosage: FREQUENCY: 1X/DAY, EVERY DAY;
     Route: 048
     Dates: end: 20090525

REACTIONS (4)
  - BLOOD CREATINE PHOSPHOKINASE INCREASED [None]
  - MYALGIA [None]
  - PERIPHERAL PARALYSIS [None]
  - RHABDOMYOLYSIS [None]
